FAERS Safety Report 14756381 (Version 4)
Quarter: 2018Q2

REPORT INFORMATION
  Report Type: Spontaneous
  Country: ES (occurrence: ES)
  Receive Date: 20180413
  Receipt Date: 20180629
  Transmission Date: 20180711
  Serious: Yes (Hospitalization, Other)
  Sender: FDA-Public Use
  Company Number: ES-SA-2018SA104219

PATIENT
  Age: 42 Year
  Sex: Female
  Weight: 50 kg

DRUGS (5)
  1. AMANTADINE. [Concomitant]
     Active Substance: AMANTADINE HYDROCHLORIDE
     Indication: FATIGUE
     Dosage: 100 MG,QD
     Route: 048
     Dates: start: 2014
  2. TOPIRAMATE. [Concomitant]
     Active Substance: TOPIRAMATE
     Indication: MIGRAINE
     Dosage: 25 MG,BID
     Route: 048
     Dates: start: 2016
  3. LEMTRADA [Suspect]
     Active Substance: ALEMTUZUMAB
     Indication: RELAPSING-REMITTING MULTIPLE SCLEROSIS
     Dosage: 12 MG,UNK
     Route: 041
     Dates: start: 20160117, end: 20160121
  4. FAMPRIDINE [Concomitant]
     Active Substance: DALFAMPRIDINE
     Indication: ASTHENIA
     Dosage: 10 MG,BID
     Route: 048
  5. LEMTRADA [Suspect]
     Active Substance: ALEMTUZUMAB
     Dosage: 12 MG,UNK
     Route: 041
     Dates: start: 20170118, end: 20170120

REACTIONS (16)
  - Gingival bleeding [Recovered/Resolved]
  - Menorrhagia [Unknown]
  - Petechiae [Unknown]
  - Respiratory tract infection [Unknown]
  - Anaemia [Unknown]
  - Odynophagia [Unknown]
  - Haematoma [Unknown]
  - Thrombosis [Unknown]
  - Agranulocytosis [Recovered/Resolved]
  - Neutropenia [Unknown]
  - Immune thrombocytopenic purpura [Recovered/Resolved]
  - Thrombocytopenia [Not Recovered/Not Resolved]
  - Pyrexia [Recovered/Resolved]
  - Leukopenia [Recovered/Resolved]
  - Lymphopenia [Unknown]
  - Discomfort [Unknown]

NARRATIVE: CASE EVENT DATE: 2018
